FAERS Safety Report 14821183 (Version 1)
Quarter: 2018Q2

REPORT INFORMATION
  Report Type: Spontaneous
  Country: US (occurrence: US)
  Receive Date: 20180427
  Receipt Date: 20180427
  Transmission Date: 20180711
  Serious: Yes (Hospitalization, Other)
  Sender: FDA-Public Use
  Company Number: US-QILU PHARMACEUTICAL CO.LTD.-QLU-000290-2018

PATIENT
  Age: 67 Year
  Sex: Male

DRUGS (2)
  1. CEFAZOLIN [Suspect]
     Active Substance: CEFAZOLIN
     Indication: STREPTOCOCCAL BACTERAEMIA
  2. CEFAZOLIN [Suspect]
     Active Substance: CEFAZOLIN
     Indication: STAPHYLOCOCCAL INFECTION
     Dosage: 2 G, TID
     Route: 042

REACTIONS (14)
  - Sterile pyuria [Unknown]
  - Vomiting [Unknown]
  - Proteinuria [Unknown]
  - Abdominal pain [Unknown]
  - Thrombocytopenia [Unknown]
  - Haematuria [Unknown]
  - Tubulointerstitial nephritis [Unknown]
  - Acute kidney injury [Unknown]
  - Nausea [Unknown]
  - Nephrotic syndrome [Unknown]
  - Blood creatinine increased [Recovering/Resolving]
  - Leukocyturia [Unknown]
  - Eosinophilia [Unknown]
  - Normocytic anaemia [Unknown]
